FAERS Safety Report 23726024 (Version 1)
Quarter: 2024Q2

REPORT INFORMATION
  Report Type: Spontaneous
  Country: US (occurrence: US)
  Receive Date: 20240410
  Receipt Date: 20240410
  Transmission Date: 20240715
  Serious: No
  Sender: FDA-Public Use
  Company Number: US-AGILE THERAPEUTICS, INC.-US-AGI-2023-000556

PATIENT
  Sex: Female
  Weight: 52.154 kg

DRUGS (1)
  1. TWIRLA [Suspect]
     Active Substance: ETHINYL ESTRADIOL\LEVONORGESTREL
     Indication: Endometriosis
     Dosage: 120 MCG/DAY LEVONORGESTREL AND 30 MCG/DAY ETHINYL ESTRADIOL
     Route: 062
     Dates: start: 2022

REACTIONS (7)
  - Abdominal distension [Unknown]
  - Muscle spasms [Unknown]
  - Discomfort [Unknown]
  - Fatigue [Unknown]
  - Product adhesion issue [Unknown]
  - Skin irritation [Unknown]
  - Off label use [Unknown]

NARRATIVE: CASE EVENT DATE: 20220101
